FAERS Safety Report 14152918 (Version 5)
Quarter: 2017Q4

REPORT INFORMATION
  Report Type: Spontaneous
  Country: ID (occurrence: ID)
  Receive Date: 20171102
  Receipt Date: 20171218
  Transmission Date: 20180321
  Serious: Yes (Other)
  Sender: FDA-Public Use
  Company Number: ID-PFIZER INC-2017466205

PATIENT
  Sex: Male

DRUGS (7)
  1. SPIRIVA [Concomitant]
     Active Substance: TIOTROPIUM BROMIDE MONOHYDRATE
     Indication: CHRONIC OBSTRUCTIVE PULMONARY DISEASE
     Dosage: UNK
     Route: 045
  2. CELEBREX [Suspect]
     Active Substance: CELECOXIB
     Indication: INTERVERTEBRAL DISC PROTRUSION
     Dosage: 200 MG, 2X/DAY
     Dates: start: 201709, end: 20171030
  3. MEDROL [Suspect]
     Active Substance: METHYLPREDNISOLONE
     Indication: INTERVERTEBRAL DISC PROTRUSION
     Dosage: 16 MG, 2X/DAY
     Dates: start: 20171019, end: 20171023
  4. OLMETEC [Suspect]
     Active Substance: OLMESARTAN MEDOXOMIL
     Indication: HYPERTENSION
  5. NEURONTIN [Suspect]
     Active Substance: GABAPENTIN
     Indication: INTERVERTEBRAL DISC PROTRUSION
     Dosage: 300 MG, 2X/DAY
     Dates: end: 20171023
  6. OLMETEC [Suspect]
     Active Substance: OLMESARTAN MEDOXOMIL
     Indication: INTERVERTEBRAL DISC PROTRUSION
     Dosage: UNK, 1X/DAY
  7. STIOLTO RESPIMAT [Concomitant]
     Active Substance: OLODATEROL HYDROCHLORIDE\TIOTROPIUM BROMIDE MONOHYDRATE
     Indication: CHRONIC OBSTRUCTIVE PULMONARY DISEASE
     Dosage: UNK
     Route: 045

REACTIONS (3)
  - Fibrin D dimer increased [Unknown]
  - Oedema peripheral [Recovering/Resolving]
  - Deep vein thrombosis [Not Recovered/Not Resolved]

NARRATIVE: CASE EVENT DATE: 20170913
